FAERS Safety Report 20176345 (Version 1)
Quarter: 2021Q4

REPORT INFORMATION
  Report Type: Spontaneous
  Country: US (occurrence: US)
  Receive Date: 20211213
  Receipt Date: 20211213
  Transmission Date: 20220304
  Serious: No
  Sender: FDA-Public Use
  Company Number: US-TAKEDA-2021TUS076897

PATIENT
  Sex: Female
  Weight: 93 kg

DRUGS (1)
  1. VEDOLIZUMAB [Suspect]
     Active Substance: VEDOLIZUMAB
     Indication: Crohn^s disease
     Dosage: UNK
     Route: 065
     Dates: start: 20210108, end: 20211124

REACTIONS (6)
  - Swelling face [Unknown]
  - Chest discomfort [Unknown]
  - Peripheral coldness [Unknown]
  - Cold sweat [Unknown]
  - Cardiac discomfort [Unknown]
  - Pruritus [Unknown]
